FAERS Safety Report 7897568-X (Version None)
Quarter: 2011Q4

REPORT INFORMATION
  Report Type: 
  Country: None (occurrence: None)
  Receive Date: 20111107
  Receipt Date: 20111031
  Transmission Date: 20120403
  Serious: Yes (Death, Life-Threatening, Hospitalization)
  Sender: FDA-Public Use
  Company Number: US-ELI_LILLY_AND_COMPANY-US201110001344

PATIENT
  Sex: Male
  Weight: 82.99 kg

DRUGS (3)
  1. COUMADIN [Concomitant]
     Indication: MYOCARDIAL INFARCTION
  2. EFFIENT [Suspect]
     Indication: STENT PLACEMENT
     Dosage: 10 MG, QD
     Route: 048
     Dates: start: 20101030, end: 20110105
  3. ASPIRIN [Concomitant]

REACTIONS (1)
  - INTRACRANIAL ANEURYSM [None]
